FAERS Safety Report 8316838-4 (Version None)
Quarter: 2012Q2

REPORT INFORMATION
  Report Type: 
  Country: None (occurrence: None)
  Receive Date: 20120427
  Receipt Date: 20120424
  Transmission Date: 20120825
  Serious: No
  Sender: FDA-Public Use
  Company Number: PHEH2012US008772

PATIENT
  Sex: Male

DRUGS (11)
  1. CENTRUM [Concomitant]
  2. INDAPAMIDE [Concomitant]
  3. PRAVASTATIN [Concomitant]
  4. DOXAZOSIN MESYLATE [Concomitant]
  5. GLIPIZIDE [Concomitant]
  6. LEVOTHYROXINE SODIUM [Concomitant]
  7. ALLOPURINOL [Concomitant]
  8. ASPIRIN [Concomitant]
  9. JANUVIA [Concomitant]
  10. LISINOPRIL [Concomitant]
  11. TASIGNA [Suspect]
     Dosage: 300 MG, BID
     Route: 048

REACTIONS (1)
  - CONSTIPATION [None]
